FAERS Safety Report 12586686 (Version 1)
Quarter: 2016Q3

REPORT INFORMATION
  Report Type: Spontaneous
  Country: US (occurrence: US)
  Receive Date: 20160725
  Receipt Date: 20160725
  Transmission Date: 20161109
  Serious: No
  Sender: FDA-Public Use
  Company Number: US-PFIZER INC-2016343070

PATIENT

DRUGS (1)
  1. EMBEDA [Suspect]
     Active Substance: MORPHINE SULFATE\NALTREXONE HYDROCHLORIDE
     Dosage: 50 MG, UNK

REACTIONS (4)
  - Withdrawal syndrome [Unknown]
  - Diarrhoea [Unknown]
  - Dyspnoea [Unknown]
  - Hyperhidrosis [Unknown]
